FAERS Safety Report 13078732 (Version 1)
Quarter: 2017Q1

REPORT INFORMATION
  Report Type: Spontaneous
  Country: US (occurrence: US)
  Receive Date: 20170102
  Receipt Date: 20170102
  Transmission Date: 20170428
  Serious: Yes (Hospitalization)
  Sender: FDA-Public Use
  Company Number: US-MEDA-2016120074

PATIENT
  Age: 81 Year
  Sex: Male
  Weight: 133 kg

DRUGS (2)
  1. MUSE [Suspect]
     Active Substance: ALPROSTADIL
     Indication: ERECTILE DYSFUNCTION
     Route: 066
     Dates: start: 20161225
  2. MUSE [Suspect]
     Active Substance: ALPROSTADIL
     Indication: ERECTILE DYSFUNCTION
     Route: 066
     Dates: start: 2014, end: 2015

REACTIONS (4)
  - Knee arthroplasty [Recovered/Resolved]
  - Device difficult to use [Unknown]
  - Bladder neck obstruction [Not Recovered/Not Resolved]
  - Urethral pain [Unknown]

NARRATIVE: CASE EVENT DATE: 2015
